FAERS Safety Report 9384651 (Version 1)
Quarter: 2013Q3

REPORT INFORMATION
  Report Type: Spontaneous
  Country: AU (occurrence: None)
  Receive Date: 20130701
  Receipt Date: 20130701
  Transmission Date: 20140515
  Serious: Yes (Hospitalization)
  Sender: FDA-Public Use
  Company Number: AUR-APL-2013-05514

PATIENT
  Age: 4 Year
  Sex: Male

DRUGS (1)
  1. RAMIPRIL [Suspect]
     Indication: NEPHRECTOMY
     Dates: start: 20121215

REACTIONS (3)
  - Urticaria [None]
  - Arthralgia [None]
  - Face oedema [None]
